FAERS Safety Report 12226006 (Version 1)
Quarter: 2016Q1

REPORT INFORMATION
  Report Type: Spontaneous
  Country: NL (occurrence: NL)
  Receive Date: 20160331
  Receipt Date: 20160331
  Transmission Date: 20160526
  Serious: Yes (Hospitalization)
  Sender: FDA-Public Use
  Company Number: NL-009507513-1603NLD012461

PATIENT
  Age: 71 Year
  Sex: Male
  Weight: 83 kg

DRUGS (11)
  1. BACLOFEN. [Concomitant]
     Active Substance: BACLOFEN
     Dosage: 1 TIME A DAY 2 UNIT(S)
     Route: 048
     Dates: start: 2008
  2. PERSANTIN RETARD [Concomitant]
     Active Substance: DIPYRIDAMOLE
     Dosage: 2 TIMES A DAY 1 UNIT(S)
     Route: 048
     Dates: start: 2008
  3. TELMISARTAN. [Concomitant]
     Active Substance: TELMISARTAN
     Dosage: 1 TIME A DAY 1 UNIT(S)
     Route: 048
     Dates: start: 2008
  4. QUETIAPINE FUMARATE. [Concomitant]
     Active Substance: QUETIAPINE FUMARATE
     Dosage: 1 TIME A DAY 2 UNIT(S)
     Route: 048
     Dates: start: 2015
  5. PANTOPRAZOLE [Concomitant]
     Active Substance: PANTOPRAZOLE SODIUM
     Dosage: 1 TIME A DAY 1 UNIT(S)
     Route: 048
     Dates: start: 2008
  6. NITRAZEPAM [Concomitant]
     Active Substance: NITRAZEPAM
     Dosage: 1/2 EACH NIGHT
     Route: 048
     Dates: start: 2008
  7. PRAVASTATIN [Concomitant]
     Active Substance: PRAVASTATIN\PRAVASTATIN SODIUM
     Dosage: 1 TIME A DAY 1 UNIT(S)
     Route: 048
     Dates: start: 2008
  8. REMERON [Suspect]
     Active Substance: MIRTAZAPINE
     Indication: DEPRESSION
     Dosage: 1 TIME A DAY 1 UNIT(S)
     Route: 048
     Dates: start: 20160312, end: 20160316
  9. BACLOFEN. [Concomitant]
     Active Substance: BACLOFEN
     Dosage: 2 TIMES A DAY 1 UNIT(S)
     Route: 048
     Dates: start: 2008
  10. CLOPIDOGREL [Concomitant]
     Active Substance: CLOPIDOGREL BISULFATE
     Dosage: 1 TIME A DAY 1 UNIT(S)
     Route: 048
     Dates: start: 2008
  11. ASCAL CARDIO [Concomitant]
     Active Substance: CARBASALATE
     Dosage: 1 TIME A DAY 1 UNIT(S)
     Route: 030
     Dates: start: 2008

REACTIONS (3)
  - Somnolence [Recovering/Resolving]
  - Abasia [Recovering/Resolving]
  - Aphasia [Recovering/Resolving]

NARRATIVE: CASE EVENT DATE: 20160313
